FAERS Safety Report 23220527 (Version 1)
Quarter: 2023Q4

REPORT INFORMATION
  Report Type: Report from Study
  Country: US (occurrence: US)
  Receive Date: 20231123
  Receipt Date: 20231123
  Transmission Date: 20240109
  Serious: Yes (Other)
  Sender: FDA-Public Use
  Company Number: US-ALXN-A202216170AA

PATIENT
  Sex: Female

DRUGS (2)
  1. ULTOMIRIS [Suspect]
     Active Substance: RAVULIZUMAB-CWVZ
     Indication: Myasthenia gravis
     Dosage: UNK, EVERY EIGHT WEEKS
     Route: 065
  2. ULTOMIRIS [Suspect]
     Active Substance: RAVULIZUMAB-CWVZ
     Dosage: UNK
     Route: 065

REACTIONS (11)
  - Ocular myasthenia [Unknown]
  - Flushing [Unknown]
  - Hyperhidrosis [Unknown]
  - Dysphonia [Unknown]
  - Eye disorder [Unknown]
  - Speech disorder [Unknown]
  - Muscle strain [Unknown]
  - Musculoskeletal discomfort [Unknown]
  - Glucose tolerance impaired [Unknown]
  - Fatigue [Unknown]
  - Asthenia [Unknown]

NARRATIVE: CASE EVENT DATE: 20221223
